FAERS Safety Report 9252715 (Version 2)
Quarter: 2013Q2

REPORT INFORMATION
  Report Type: Spontaneous
  Country: IT (occurrence: IT)
  Receive Date: 20130424
  Receipt Date: 20130430
  Transmission Date: 20140414
  Serious: Yes (Hospitalization)
  Sender: FDA-Public Use
  Company Number: IT-ASTRAZENECA-2013SE24843

PATIENT
  Age: 16753 Day
  Sex: Female

DRUGS (6)
  1. ZOMIG [Suspect]
     Indication: MIGRAINE
     Route: 048
     Dates: start: 201204, end: 20120717
  2. ZOMIG [Suspect]
     Indication: MIGRAINE
     Route: 048
     Dates: start: 20120727, end: 20120728
  3. XERISTAR [Suspect]
     Route: 048
     Dates: start: 201204, end: 20120717
  4. DIIDERGOT (DIHYDROERGOTAMINE) [Suspect]
     Indication: MIGRAINE
     Dosage: 2 MG/ML, 40 DROPS PER DAY
     Route: 048
     Dates: start: 201204, end: 20120717
  5. MAXALT [Suspect]
     Route: 048
     Dates: start: 201204, end: 20120717
  6. LORMETAZEPAM [Concomitant]
     Indication: INSOMNIA
     Route: 048
     Dates: start: 201204

REACTIONS (2)
  - Urticaria [Recovered/Resolved]
  - Angioedema [Recovered/Resolved]
